FAERS Safety Report 7109250-7 (Version None)
Quarter: 2010Q4

REPORT INFORMATION
  Report Type: 
  Country: None (occurrence: None)
  Receive Date: 20101117
  Receipt Date: 20101115
  Transmission Date: 20110411
  Serious: Yes (Death)
  Sender: FDA-Public Use
  Company Number: US-MILLENNIUM PHARMACEUTICALS, INC.-2010-05717

PATIENT

DRUGS (3)
  1. VELCADE [Suspect]
     Indication: LEUKAEMIA
     Dosage: 1.3 MG/M2, CYCLIC
  2. MITOXANTRONE [Suspect]
     Indication: LEUKAEMIA
     Dosage: 10 MG/M2, CYCLIC
  3. ETOPOSIDE [Suspect]
     Indication: LEUKAEMIA
     Dosage: 100 MG/M2, CYCLIC

REACTIONS (1)
  - COMPLICATIONS OF BONE MARROW TRANSPLANT [None]
